FAERS Safety Report 17322314 (Version 1)
Quarter: 2020Q1

REPORT INFORMATION
  Report Type: Other
  Country: US (occurrence: US)
  Receive Date: 20200127
  Receipt Date: 20200127
  Transmission Date: 20200409
  Serious: No
  Sender: FDA-Public Use
  Company Number: US-ACORDA-ACO_160785_2019

PATIENT
  Sex: Female
  Weight: 65.76 kg

DRUGS (2)
  1. AMPYRA [Suspect]
     Active Substance: DALFAMPRIDINE
     Indication: MULTIPLE SCLEROSIS
     Dosage: 10 MILLIGRAM, BID
     Route: 048
     Dates: start: 201908, end: 20190825
  2. REBIF [Concomitant]
     Active Substance: INTERFERON BETA-1A
     Indication: PRODUCT USED FOR UNKNOWN INDICATION
     Dosage: AS DIRECTED
     Route: 065

REACTIONS (6)
  - Condition aggravated [Unknown]
  - Gait disturbance [Unknown]
  - Optic neuritis [Unknown]
  - Therapeutic response unexpected [Unknown]
  - Urinary retention [Unknown]
  - Balance disorder [Unknown]
